FAERS Safety Report 5925731-3 (Version None)
Quarter: 2008Q4

REPORT INFORMATION
  Report Type: 
  Country: None (occurrence: None)
  Receive Date: 20081021
  Receipt Date: 20080929
  Transmission Date: 20090506
  Serious: Yes (Hospitalization)
  Sender: FDA-Public Use
  Company Number: NO-AVENTIS-200819841GDDC

PATIENT
  Age: 54 Year
  Sex: Female

DRUGS (3)
  1. ARAVA [Suspect]
     Route: 048
     Dates: start: 20060901, end: 20080312
  2. ACETAMINOPHEN [Concomitant]
     Dosage: DOSE: UNK
     Route: 048
  3. IBUX [Concomitant]
     Dosage: DOSE: 400 MG X 2
     Route: 048

REACTIONS (6)
  - DYSPNOEA [None]
  - HEPATIC ENZYME INCREASED [None]
  - HOT FLUSH [None]
  - MALAISE [None]
  - NIGHT SWEATS [None]
  - WEIGHT DECREASED [None]
